FAERS Safety Report 10738441 (Version 1)
Quarter: 2015Q1

REPORT INFORMATION
  Report Type: Spontaneous
  Country: IT (occurrence: IT)
  Receive Date: 20150126
  Receipt Date: 20150126
  Transmission Date: 20150721
  Serious: Yes (Other)
  Sender: FDA-Public Use
  Company Number: IT-ACTAVIS-2015-00793

PATIENT
  Age: 67 Year
  Sex: Female
  Weight: 78 kg

DRUGS (6)
  1. IRINOTECAN (UNKNOWN) [Suspect]
     Active Substance: IRINOTECAN
     Indication: COLON CANCER METASTATIC
     Dosage: 250 MG, CYCLICAL
     Route: 017
     Dates: start: 20140302, end: 20141216
  2. FLUOROURACIL. [Suspect]
     Active Substance: FLUOROURACIL
     Dosage: 540 MG CYCLICAL
     Route: 017
     Dates: start: 20140302, end: 20141216
  3. IRINOTECAN (UNKNOWN) [Suspect]
     Active Substance: IRINOTECAN
     Dosage: 540 MG, CYCLICAL
     Route: 017
     Dates: start: 20140302, end: 20141216
  4. FLUOROURACIL. [Suspect]
     Active Substance: FLUOROURACIL
     Indication: COLON CANCER METASTATIC
     Dosage: 3300 MG, CYCLICAL DRIP
     Route: 017
     Dates: start: 20140302, end: 20141216
  5. LEVOFOLINIC ACID [Concomitant]
     Active Substance: LEVOLEUCOVORIN
     Indication: PRODUCT USED FOR UNKNOWN INDICATION
     Dosage: 270 MG, UNKNOWN
     Route: 065
     Dates: start: 20140302, end: 20141216
  6. ERBITUX [Suspect]
     Active Substance: CETUXIMAB
     Indication: COLON CANCER METASTATIC
     Dosage: 340 MG, CYCLICAL
     Route: 017
     Dates: start: 20140302, end: 20141216

REACTIONS (3)
  - Chondropathy [Not Recovered/Not Resolved]
  - Influenza [Recovered/Resolved]
  - Hypertensive crisis [Recovering/Resolving]

NARRATIVE: CASE EVENT DATE: 20140821
